FAERS Safety Report 8105771-9 (Version None)
Quarter: 2012Q1

REPORT INFORMATION
  Report Type: 
  Country: None (occurrence: None)
  Receive Date: 20120201
  Receipt Date: 20120127
  Transmission Date: 20120608
  Serious: No
  Sender: FDA-Public Use
  Company Number: US-PFIZER INC-2012023593

PATIENT
  Sex: Male
  Weight: 82.54 kg

DRUGS (5)
  1. NEXIUM [Concomitant]
     Indication: OESOPHAGEAL DISORDER
     Dosage: 40 MG, 2X/DAY
  2. LYRICA [Suspect]
     Indication: FACIAL NEURALGIA
     Dosage: 600 MG DAILY
     Route: 048
     Dates: start: 20110727
  3. ALLOPURINOL [Concomitant]
     Indication: NEPHROLITHIASIS
     Dosage: 300 MG DAILY
  4. GABAPENTIN [Suspect]
     Indication: FACIAL NEURALGIA
     Dosage: 1200 MG, 3X/DAY
     Dates: start: 20110701, end: 20110701
  5. AMBIEN [Concomitant]
     Indication: SLEEP DISORDER
     Dosage: 10 MG DAILY
     Route: 048

REACTIONS (2)
  - DRUG INEFFECTIVE [None]
  - FACIAL NEURALGIA [None]
